FAERS Safety Report 16025722 (Version 1)
Quarter: 2019Q1

REPORT INFORMATION
  Report Type: Spontaneous
  Country: FR (occurrence: FR)
  Receive Date: 20190302
  Receipt Date: 20190302
  Transmission Date: 20190418
  Serious: Yes (Other)
  Sender: FDA-Public Use
  Company Number: FR-ACCORD-110247

PATIENT
  Age: 54 Year
  Sex: Male

DRUGS (1)
  1. CISPLATIN. [Suspect]
     Active Substance: CISPLATIN
     Indication: OESOPHAGEAL CANCER METASTATIC
     Route: 042
     Dates: start: 20170720, end: 20170720

REACTIONS (1)
  - Anaphylactoid shock [Recovered/Resolved]

NARRATIVE: CASE EVENT DATE: 20170720
